FAERS Safety Report 7657170-1 (Version None)
Quarter: 2011Q3

REPORT INFORMATION
  Report Type: 
  Country: None (occurrence: None)
  Receive Date: 20110804
  Receipt Date: 20110728
  Transmission Date: 20111222
  Serious: Yes (Hospitalization)
  Sender: FDA-Public Use
  Company Number: GB-GENZYME-CAMP-1001706

PATIENT

DRUGS (4)
  1. ALEMTUZUMAB [Suspect]
     Indication: MULTIPLE SCLEROSIS
     Dosage: 12 MG, QDX5
     Route: 042
     Dates: start: 20090316, end: 20090320
  2. ALEMTUZUMAB [Suspect]
     Dosage: UNK UNK, UNK
     Route: 065
  3. ALEMTUZUMAB [Suspect]
     Dosage: 12 MG, QDX3
     Route: 042
     Dates: start: 20100316, end: 20100318
  4. OMEPRAZOLE [Concomitant]
     Indication: PROPHYLAXIS
     Dosage: 20 MG, QD
     Route: 048
     Dates: start: 20110619

REACTIONS (3)
  - HYPERTHYROIDISM [None]
  - PALPITATIONS [None]
  - HAEMOLYTIC ANAEMIA [None]
